FAERS Safety Report 7393518-3 (Version None)
Quarter: 2011Q1

REPORT INFORMATION
  Report Type: 
  Country: None (occurrence: None)
  Receive Date: 20110301
  Receipt Date: 20101206
  Transmission Date: 20110831
  Serious: Yes (Disabling, Other)
  Sender: FDA-Public Use
  Company Number: ALA_01208_2010

PATIENT
  Sex: Male
  Weight: 73.4827 kg

DRUGS (13)
  1. SLEEP MEDICATION [Concomitant]
  2. BUSPIRONE [Concomitant]
  3. ANTIDEPRESSANTS [Concomitant]
  4. PERPHENAZINE [Concomitant]
  5. TAGAMET OO397401/ [Concomitant]
  6. BUPROPION HYDROCHLORIDE [Concomitant]
  7. STEROID USE [Concomitant]
  8. VENLAFAXINE HCL [Concomitant]
  9. MARIJUANA [Concomitant]
  10. REGLAN [Suspect]
     Indication: GASTROOESOPHAGEAL REFLUX DISEASE
     Dosage: (DF ORAL)
     Route: 048
     Dates: start: 20010101, end: 20090101
  11. REGLAN [Suspect]
     Indication: HIATUS HERNIA
     Dosage: (DF ORAL)
     Route: 048
     Dates: start: 20010101, end: 20090101
  12. DIPHENHYDRAMINE [Concomitant]
  13. AMITRIPTYLINE [Concomitant]

REACTIONS (2)
  - TARDIVE DYSKINESIA [None]
  - TREMOR [None]
